FAERS Safety Report 10537071 (Version 1)
Quarter: 2014Q4

REPORT INFORMATION
  Report Type: Spontaneous
  Country: FR (occurrence: FR)
  Receive Date: 20141022
  Receipt Date: 20141022
  Transmission Date: 20150529
  Serious: Yes (Hospitalization)
  Sender: FDA-Public Use
  Company Number: FR-009507513-1410FRA008708

PATIENT
  Age: 69 Year
  Sex: Female

DRUGS (9)
  1. ARACYTINE [Suspect]
     Active Substance: CYTARABINE
     Dosage: 160 MG, UNK FROM DAY 1 TO DAY 7
     Route: 042
     Dates: start: 20140902, end: 20140907
  2. AZACTAM [Suspect]
     Active Substance: AZTREONAM
     Dosage: 2 G, TID
     Route: 042
     Dates: start: 20140824, end: 20140922
  3. NOXAFIL [Suspect]
     Active Substance: POSACONAZOLE
     Dosage: UNK
     Route: 048
     Dates: start: 20140830, end: 20140916
  4. BELUSTINE [Suspect]
     Active Substance: LOMUSTINE
     Dosage: DOSE 322 MG DAY 1
     Route: 048
     Dates: start: 20140902, end: 20140902
  5. HEPARIN SODIUM. [Suspect]
     Active Substance: HEPARIN SODIUM
     Dosage: UNK
     Route: 042
     Dates: start: 20140824, end: 20140908
  6. ONDANSETRON [Suspect]
     Active Substance: ONDANSETRON
     Dosage: 8 MG, QD
     Route: 048
     Dates: start: 20140902, end: 20140911
  7. ZAVEDOS [Suspect]
     Active Substance: IDARUBICIN
     Dosage: 13 MG, UNK FROM DAY 1 TO DAY 5
     Route: 042
     Dates: start: 20140902, end: 20140906
  8. VANCOMYCIN SANDOZ [Suspect]
     Active Substance: VANCOMYCIN
     Dosage: UNK
     Route: 042
     Dates: start: 20140828, end: 20140922
  9. ZYLORIC [Suspect]
     Active Substance: ALLOPURINOL
     Dosage: 300 MG, QD
     Route: 048
     Dates: start: 20140824, end: 20140908

REACTIONS (1)
  - Drug eruption [Recovered/Resolved]

NARRATIVE: CASE EVENT DATE: 20140908
